FAERS Safety Report 15474648 (Version 1)
Quarter: 2018Q4

REPORT INFORMATION
  Report Type: Report from Study
  Country: GB (occurrence: GB)
  Receive Date: 20181008
  Receipt Date: 20181008
  Transmission Date: 20190205
  Serious: Yes (Other)
  Sender: FDA-Public Use
  Company Number: GB-PFIZER INC-2018401370

PATIENT
  Age: 85 Year
  Sex: Female

DRUGS (6)
  1. MORPHINE SULFATE. [Suspect]
     Active Substance: MORPHINE SULFATE
     Indication: ANALGESIC THERAPY
  2. NITROUS OXIDE. [Suspect]
     Active Substance: NITROUS OXIDE
     Indication: ANALGESIC THERAPY
  3. MORPHINE SULFATE. [Suspect]
     Active Substance: MORPHINE SULFATE
     Indication: SEDATIVE THERAPY
     Dosage: 10 MG, UNK
     Route: 042
  4. FRUSEMIDE [FUROSEMIDE] [Concomitant]
     Indication: FLUID RETENTION
     Dosage: UNK
  5. PROPOFOL. [Suspect]
     Active Substance: PROPOFOL
     Indication: SEDATIVE THERAPY
     Dosage: 1 MG/KG, UNK
     Route: 042
  6. NITROUS OXIDE. [Suspect]
     Active Substance: NITROUS OXIDE
     Indication: SEDATIVE THERAPY
     Dosage: UNK

REACTIONS (1)
  - Hypoxia [Unknown]
